FAERS Safety Report 16556578 (Version 1)
Quarter: 2019Q3

REPORT INFORMATION
  Report Type: Other
  Country: KR (occurrence: KR)
  Receive Date: 20190711
  Receipt Date: 20190711
  Transmission Date: 20191004
  Serious: No
  Sender: FDA-Public Use
  Company Number: KR-AGG-10-2018-0988

PATIENT

DRUGS (18)
  1. TRAZODONE [Concomitant]
     Active Substance: TRAZODONE HYDROCHLORIDE
  2. GLIMEPIRIDE. [Concomitant]
     Active Substance: GLIMEPIRIDE
  3. FUROSEMIDE. [Concomitant]
     Active Substance: FUROSEMIDE
  4. LORAZEPAM. [Concomitant]
     Active Substance: LORAZEPAM
  5. HEPARIN [Concomitant]
     Active Substance: HEPARIN SODIUM
     Dosage: 70 U/KG
     Route: 040
  6. DIGOXIN. [Concomitant]
     Active Substance: DIGOXIN
  7. SPIRONOLACTONE. [Concomitant]
     Active Substance: SPIRONOLACTONE
  8. AGGRASTAT [Suspect]
     Active Substance: TIROFIBAN HYDROCHLORIDE
     Indication: ANTIPLATELET THERAPY
     Dosage: 0.4 MCG/KG/MIN FOR 30 MIN
     Route: 042
  9. CLOPIDOGREL [Concomitant]
     Active Substance: CLOPIDOGREL BISULFATE
     Dosage: LOADING DOSES
  10. ASPIRIN. [Concomitant]
     Active Substance: ASPIRIN
     Dosage: MAINTENANCE DOSE
  11. CLOPIDOGREL [Concomitant]
     Active Substance: CLOPIDOGREL BISULFATE
     Dosage: MAINTENANCE DOSE
  12. ATROVASTATIN [Concomitant]
     Active Substance: ATORVASTATIN CALCIUM
  13. METFORMIN [Concomitant]
     Active Substance: METFORMIN HYDROCHLORIDE
  14. LOSARTAN POTASSIUM. [Concomitant]
     Active Substance: LOSARTAN POTASSIUM
  15. ASPIRIN. [Concomitant]
     Active Substance: ASPIRIN
     Dosage: LOADING DOSES
  16. CARVEDILOL. [Concomitant]
     Active Substance: CARVEDILOL
  17. AGGRASTAT [Suspect]
     Active Substance: TIROFIBAN HYDROCHLORIDE
     Indication: ANTIPLATELET THERAPY
     Dosage: 0.10 MCG/KG/MIN FOR 12H
     Route: 041
  18. ZOLPIDEM [Concomitant]
     Active Substance: ZOLPIDEM TARTRATE

REACTIONS (2)
  - Dyspnoea [Unknown]
  - Chest discomfort [Unknown]
